FAERS Safety Report 6704996-4 (Version None)
Quarter: 2010Q2

REPORT INFORMATION
  Report Type: 
  Country: None (occurrence: None)
  Receive Date: 20100430
  Receipt Date: 20100422
  Transmission Date: 20101027
  Serious: Yes (Death)
  Sender: FDA-Public Use
  Company Number: A0856998A

PATIENT
  Sex: Female

DRUGS (2)
  1. TYKERB [Suspect]
     Indication: BREAST CANCER
     Dosage: 250MG UNKNOWN
     Route: 065
  2. XELODA [Concomitant]
     Dosage: 2000MG UNKNOWN
     Route: 065

REACTIONS (3)
  - HEPATIC CIRRHOSIS [None]
  - LIVER DISORDER [None]
  - RENAL FAILURE [None]
